FAERS Safety Report 11972038 (Version 2)
Quarter: 2016Q2

REPORT INFORMATION
  Report Type: Report from Study
  Country: BR (occurrence: BR)
  Receive Date: 20160128
  Receipt Date: 20160427
  Transmission Date: 20160815
  Serious: Yes (Other)
  Sender: FDA-Public Use
  Company Number: PHHY2016BR008844

PATIENT
  Age: 69 Year
  Sex: Female
  Weight: 70 kg

DRUGS (1)
  1. ACLASTA [Suspect]
     Active Substance: ZOLEDRONIC ACID
     Indication: OSTEOPOROSIS
     Dosage: 5 MG, Q12MO (1 AMPOULE PER YEAR)
     Route: 042
     Dates: start: 20150728

REACTIONS (5)
  - Calcium deficiency [Recovering/Resolving]
  - Clavicle fracture [Not Recovered/Not Resolved]
  - Eating disorder [Unknown]
  - Mobility decreased [Unknown]
  - Osteoporosis [Recovering/Resolving]

NARRATIVE: CASE EVENT DATE: 201601
